FAERS Safety Report 11421258 (Version 1)
Quarter: 2015Q3

REPORT INFORMATION
  Report Type: Spontaneous
  Country: US (occurrence: US)
  Receive Date: 20150826
  Receipt Date: 20150826
  Transmission Date: 20151125
  Serious: No
  Sender: FDA-Public Use
  Company Number: US-ELI_LILLY_AND_COMPANY-US201508007321

PATIENT
  Sex: Male

DRUGS (4)
  1. HUMALOG [Suspect]
     Active Substance: INSULIN LISPRO
     Indication: TYPE 2 DIABETES MELLITUS
     Dosage: UNK, PRN
     Route: 058
     Dates: start: 2007
  2. INVOKANA [Concomitant]
     Active Substance: CANAGLIFLOZIN
     Dosage: 100 MG, QD
  3. TANZEUM [Concomitant]
     Active Substance: ALBIGLUTIDE
     Dosage: 50 MG, WEEKLY (1/W)
  4. METFORMIN [Concomitant]
     Active Substance: METFORMIN HYDROCHLORIDE
     Dosage: 1000 MG, BID

REACTIONS (2)
  - Glycosylated haemoglobin increased [Recovering/Resolving]
  - Burning sensation [Unknown]

NARRATIVE: CASE EVENT DATE: 2009
